FAERS Safety Report 15779458 (Version 1)
Quarter: 2019Q1

REPORT INFORMATION
  Report Type: Spontaneous
  Country: US (occurrence: US)
  Receive Date: 20190101
  Receipt Date: 20190101
  Transmission Date: 20190417
  Serious: No
  Sender: FDA-Public Use
  Company Number: US-B.I. PHARMACEUTICALS,INC./RIDGEFIELD-2018-BI-061723

PATIENT
  Sex: Female

DRUGS (3)
  1. TRESIBA [Concomitant]
     Active Substance: INSULIN DEGLUDEC
     Indication: DIABETES MELLITUS
     Dosage: 1 TIME DAILY;  FORMULATION: SUBCUTANEOUS;
     Route: 058
     Dates: start: 2017
  2. JARDIANCE [Suspect]
     Active Substance: EMPAGLIFLOZIN
     Indication: DIABETES MELLITUS
     Dosage: 1 TABLET DAILY; STRENGTH: 25 MG; FORMULATION: TABLET? ADMINISTRATION YES ?ACTION(S) DOSE NOT CHANGED
     Route: 048
     Dates: start: 2016
  3. TRULICITY [Concomitant]
     Active Substance: DULAGLUTIDE
     Indication: DIABETES MELLITUS
     Dosage: 1 TIME WEEKLY;  FORMULATION: SUBCUTANEOUS;
     Route: 058
     Dates: start: 2016

REACTIONS (4)
  - Vaginal infection [Not Recovered/Not Resolved]
  - Large intestine polyp [Recovered/Resolved]
  - Gastric disorder [Not Recovered/Not Resolved]
  - Amnesia [Not Recovered/Not Resolved]

NARRATIVE: CASE EVENT DATE: 2016
